FAERS Safety Report 6797005-2 (Version None)
Quarter: 2010Q2

REPORT INFORMATION
  Report Type: 
  Country: None (occurrence: None)
  Receive Date: 20100618
  Receipt Date: 20100602
  Transmission Date: 20101027
  Serious: Yes (Hospitalization)
  Sender: FDA-Public Use
  Company Number: 2010SP002587

PATIENT
  Age: 43 Year
  Sex: Female
  Weight: 63.5 kg

DRUGS (3)
  1. CERAZETTE (DESOGESTREL /00754001/) [Suspect]
     Indication: CONTRACEPTION
     Dosage: 0.075 MG; QD; PO
     Route: 048
     Dates: start: 20091101, end: 20100531
  2. ENALAPRIL MALEATE [Concomitant]
  3. CIPROFLOXACIN [Concomitant]

REACTIONS (13)
  - BREAST SWELLING [None]
  - CONDITION AGGRAVATED [None]
  - ERYTHEMA [None]
  - NERVOUSNESS [None]
  - PAIN [None]
  - PRURITUS [None]
  - SELF-MEDICATION [None]
  - SWELLING [None]
  - URINARY TRACT INFECTION [None]
  - UTERINE LEIOMYOMA [None]
  - UTERINE PAIN [None]
  - VAGINAL HAEMORRHAGE [None]
  - WEIGHT INCREASED [None]
